FAERS Safety Report 14483141 (Version 2)
Quarter: 2018Q1

REPORT INFORMATION
  Report Type: Spontaneous
  Country: US (occurrence: US)
  Receive Date: 20180204
  Receipt Date: 20180228
  Transmission Date: 20180509
  Serious: Yes (Death, Other)
  Sender: FDA-Public Use
  Company Number: US-BRISTOL-MYERS SQUIBB COMPANY-BMS-2018-006435

PATIENT
  Sex: Male
  Weight: 87.99 kg

DRUGS (1)
  1. YERVOY [Suspect]
     Active Substance: IPILIMUMAB
     Indication: NEOPLASM MALIGNANT
     Dosage: 10 MG/KG (885 MG)
     Route: 042
     Dates: start: 20170920, end: 20171124

REACTIONS (2)
  - Death [Fatal]
  - Prescribed overdose [Unknown]
